FAERS Safety Report 8472426-0 (Version None)
Quarter: 2012Q2

REPORT INFORMATION
  Report Type: 
  Country: None (occurrence: None)
  Receive Date: 20120627
  Receipt Date: 20110825
  Transmission Date: 20120825
  Serious: No
  Sender: FDA-Public Use
  Company Number: US-AMGEN-USASP2011043999

PATIENT
  Age: 78 Year
  Sex: Male
  Weight: 114.3 kg

DRUGS (12)
  1. PROTONIX [Concomitant]
     Indication: GASTRIC ULCER HAEMORRHAGE
     Dosage: 400 MG, BID
     Route: 048
  2. TADOR [Concomitant]
     Dosage: 30 MEQ, QD
     Route: 048
  3. ABIRATERONE ACETATE [Concomitant]
     Indication: BONE NEOPLASM MALIGNANT
  4. GABAPENTIN [Concomitant]
     Indication: NEUROPATHY PERIPHERAL
     Dosage: 300 MG, BID
  5. PREDNISONE TAB [Concomitant]
     Dosage: 15 MG, QD
     Route: 048
     Dates: start: 20110813
  6. PROCRIT [Suspect]
     Indication: PRODUCT USED FOR UNKNOWN INDICATION
     Dosage: UNK, QWK
  7. ABIRATERONE ACETATE [Concomitant]
     Indication: PROSTATE CANCER
     Dosage: 1000 MG, QD
     Dates: start: 20110813
  8. MULTAQ [Concomitant]
     Indication: ARRHYTHMIA
     Dosage: 400 MG, BID
     Route: 048
  9. COLACE [Concomitant]
     Indication: CONSTIPATION
     Dosage: UNK UNK, BID
     Route: 048
  10. OXYCODONE HCL [Concomitant]
     Indication: PAIN
     Dosage: UNK UNK, PRN
     Route: 048
  11. TORSEMIDE [Concomitant]
     Indication: BLOOD PRESSURE
     Dosage: 20 MG, QD
     Route: 048
  12. TEMAZEPAM [Concomitant]
     Indication: SLEEP DISORDER
     Dosage: 30 MG, QD
     Route: 048

REACTIONS (1)
  - ATRIAL FIBRILLATION [None]
